APPROVED DRUG PRODUCT: CEFAZOLIN AND DEXTROSE
Active Ingredient: CEFAZOLIN SODIUM
Strength: EQ 500MG BASE/VIAL
Dosage Form/Route: INJECTABLE;INJECTION
Application: N050779 | Product #001
Applicant: B BRAUN MEDICAL INC
Approved: Jul 27, 2000 | RLD: No | RS: No | Type: DISCN